FAERS Safety Report 10197622 (Version 1)
Quarter: 2014Q2

REPORT INFORMATION
  Report Type: Spontaneous
  Country: US (occurrence: US)
  Receive Date: 20140527
  Receipt Date: 20140527
  Transmission Date: 20141212
  Serious: No
  Sender: FDA-Public Use
  Company Number: US-JNJFOC-20140512315

PATIENT
  Age: 18 Year
  Sex: Female
  Weight: 92.99 kg

DRUGS (2)
  1. INVEGA SUSTENNA [Suspect]
     Indication: PRODUCT USED FOR UNKNOWN INDICATION
     Dosage: DAY 8 DOSE AND MONTHLY MAINTAINANCE
     Route: 030
     Dates: start: 201404
  2. RISPERIDAL [Suspect]
     Indication: PRODUCT USED FOR UNKNOWN INDICATION
     Route: 048

REACTIONS (3)
  - Weight increased [Unknown]
  - Injection site induration [Not Recovered/Not Resolved]
  - Glycosylated haemoglobin increased [Unknown]
